FAERS Safety Report 4491583-4 (Version None)
Quarter: 2004Q4

REPORT INFORMATION
  Report Type: 
  Country: None (occurrence: None)
  Receive Date: 20041101
  Receipt Date: 20041019
  Transmission Date: 20050328
  Serious: Yes (Death, Other)
  Sender: FDA-Public Use
  Company Number: 2004080217

PATIENT
  Age: 39 Year
  Sex: Male

DRUGS (2)
  1. SULPERAZONE (CEFOPERAZONE, SULBACTAM) [Suspect]
     Indication: SEPSIS
     Dosage: 1 GRAM, INTRAVENOUS
     Route: 042
  2. IMIPENEM [Concomitant]

REACTIONS (1)
  - SEPSIS [None]
